FAERS Safety Report 24594968 (Version 2)
Quarter: 2024Q4

REPORT INFORMATION
  Report Type: Spontaneous
  Country: US (occurrence: US)
  Receive Date: 20241108
  Receipt Date: 20241204
  Transmission Date: 20250114
  Serious: Yes (Other)
  Sender: PFIZER
  Company Number: US-PFIZER INC-PV202400144451

PATIENT
  Sex: Female

DRUGS (1)
  1. DEPO-PROVERA [Suspect]
     Active Substance: MEDROXYPROGESTERONE ACETATE
     Indication: Contraception
     Dosage: UNK
     Route: 030
     Dates: start: 2002, end: 2004

REACTIONS (5)
  - Meningioma [Unknown]
  - Vasogenic cerebral oedema [Unknown]
  - Dry eye [Unknown]
  - Anisometropia [Unknown]
  - Blepharitis [Unknown]

NARRATIVE: CASE EVENT DATE: 20200430
